FAERS Safety Report 15110367 (Version 1)
Quarter: 2018Q3

REPORT INFORMATION
  Report Type: Report from Study
  Country: US (occurrence: US)
  Receive Date: 20180705
  Receipt Date: 20180705
  Transmission Date: 20181010
  Serious: No
  Sender: FDA-Public Use
  Company Number: PHEH2018US021551

PATIENT
  Sex: Male

DRUGS (2)
  1. ENTRESTO [Suspect]
     Active Substance: SACUBITRIL\VALSARTAN
     Indication: BUNDLE BRANCH BLOCK LEFT
     Dosage: UNK
     Route: 048
  2. ENTRESTO [Suspect]
     Active Substance: SACUBITRIL\VALSARTAN
     Dosage: 1 DF, (97 MG OF SACUBITRIL/103 MG OF VALSARTAN)
     Route: 065

REACTIONS (3)
  - Drug ineffective [Unknown]
  - Ejection fraction decreased [Recovering/Resolving]
  - Product use in unapproved indication [Unknown]
